FAERS Safety Report 9272468 (Version 3)
Quarter: 2013Q3

REPORT INFORMATION
  Report Type: Spontaneous
  Country: US (occurrence: US)
  Receive Date: 20130506
  Receipt Date: 20130906
  Transmission Date: 20140515
  Serious: Yes (Hospitalization)
  Sender: FDA-Public Use
  Company Number: US-GLAXOSMITHKLINE-A1021657A

PATIENT
  Age: 68 Year
  Sex: Female

DRUGS (10)
  1. VENTOLIN [Suspect]
     Indication: DYSPNOEA
     Dosage: 2PUFF AS REQUIRED
     Route: 055
     Dates: start: 201303
  2. SPIRONOLACTONE [Concomitant]
  3. AMIODARONE [Concomitant]
  4. ASPIRIN [Concomitant]
  5. FUROSEMIDE [Concomitant]
  6. KLOR-CON [Concomitant]
  7. XANAX [Concomitant]
  8. NITROGLYCERIN [Concomitant]
  9. CITALOPRAM [Concomitant]
  10. DILAUDID [Concomitant]

REACTIONS (7)
  - Dyspnoea [Not Recovered/Not Resolved]
  - Fatigue [Recovered/Resolved]
  - Lung disorder [Recovered/Resolved]
  - Rotator cuff syndrome [Not Recovered/Not Resolved]
  - Pain [Recovered/Resolved]
  - Drug administration error [Unknown]
  - Product quality issue [Unknown]
